FAERS Safety Report 7406687-3 (Version None)
Quarter: 2011Q2

REPORT INFORMATION
  Report Type: 
  Country: None (occurrence: None)
  Receive Date: 20110411
  Receipt Date: 20110404
  Transmission Date: 20111010
  Serious: Yes (Hospitalization)
  Sender: FDA-Public Use
  Company Number: FR-PFIZER INC-2011074722

PATIENT
  Age: 41 Year
  Sex: Male
  Weight: 52.4 kg

DRUGS (12)
  1. ZYVOX [Suspect]
     Indication: LUNG DISORDER
     Dosage: UNKNOWN
     Route: 042
     Dates: start: 20101201, end: 20101211
  2. SOLIAN [Concomitant]
     Indication: SCHIZOPHRENIA
     Dosage: 50 MG, 1X/DAY
     Route: 048
  3. TRIMEBUTINE MALEATE [Concomitant]
     Dosage: 3 DF, 1X/DAY
     Route: 048
  4. BACLOFEN [Concomitant]
     Indication: MUSCLE RIGIDITY
     Dosage: 20 MG, 3X/DAY
     Route: 048
     Dates: start: 20101201
  5. XATRAL - SLOW RELEASE [Concomitant]
     Indication: URINARY RETENTION
     Dosage: 10 MG, 1X/DAY
     Route: 048
  6. POTASSIUM RICHARD [Concomitant]
     Indication: HYPOKALAEMIA
     Dosage: UNKNOWN
     Route: 048
  7. ZYVOX [Interacting]
     Dosage: UNKNOWN
     Route: 042
     Dates: start: 20110126, end: 20110128
  8. GENTAMICIN [Concomitant]
     Indication: LUNG DISORDER
     Dosage: UNKNOWN
     Route: 042
     Dates: start: 20101201
  9. NEXIUM [Concomitant]
     Indication: GASTRODUODENAL ULCER
     Dosage: 20 MG, 1X/DAY
     Route: 048
  10. DANTRIUM [Concomitant]
     Indication: MUSCLE SPASTICITY
     Dosage: 75 MG, 1X/DAY
     Route: 048
  11. CONTRAMAL [Interacting]
     Indication: PAIN
     Dosage: 200 MG, 2X/DAY
     Route: 048
  12. TAZOCILLINE [Concomitant]
     Indication: LUNG DISORDER
     Dosage: UNKNOWN
     Route: 042
     Dates: start: 20101201

REACTIONS (2)
  - DRUG INTERACTION [None]
  - EPILEPSY [None]
